FAERS Safety Report 16133903 (Version 1)
Quarter: 2019Q1

REPORT INFORMATION
  Report Type: Spontaneous
  Country: US (occurrence: US)
  Receive Date: 20190329
  Receipt Date: 20190329
  Transmission Date: 20190418
  Serious: No
  Sender: FDA-Public Use
  Company Number: US-BAYER-2019-050477

PATIENT
  Sex: Female
  Weight: 43 kg

DRUGS (2)
  1. HERBAL WATER PILL [Concomitant]
  2. CLARITIN [Suspect]
     Active Substance: LORATADINE
     Indication: PRURITUS
     Dosage: 1 DF, QID
     Route: 048
     Dates: end: 20190311

REACTIONS (3)
  - Off label use [Unknown]
  - Product use in unapproved indication [Unknown]
  - Product administered at inappropriate site [None]

NARRATIVE: CASE EVENT DATE: 20190222
